APPROVED DRUG PRODUCT: AKPENTOLATE
Active Ingredient: CYCLOPENTOLATE HYDROCHLORIDE
Strength: 2%
Dosage Form/Route: SOLUTION/DROPS;OPHTHALMIC
Application: A040165 | Product #001 | TE Code: AT
Applicant: RISING PHARMA HOLDINGS INC
Approved: Jan 13, 1997 | RLD: No | RS: No | Type: RX